FAERS Safety Report 7068268-3 (Version None)
Quarter: 2010Q4

REPORT INFORMATION
  Report Type: 
  Country: None (occurrence: None)
  Receive Date: 20101027
  Receipt Date: 20101027
  Transmission Date: 20110411
  Serious: Yes (Other)
  Sender: FDA-Public Use
  Company Number: None

PATIENT
  Age: 5 Month
  Sex: Male
  Weight: 9.5255 kg

DRUGS (1)
  1. HYLANDS TEETHING TABLETS [Suspect]
     Dates: start: 20101012, end: 20101022

REACTIONS (6)
  - IRRITABILITY [None]
  - PAIN [None]
  - PRODUCT FORMULATION ISSUE [None]
  - PRODUCT QUALITY ISSUE [None]
  - RASH [None]
  - SCREAMING [None]
